FAERS Safety Report 5287691-0 (Version None)
Quarter: 2007Q2

REPORT INFORMATION
  Report Type: 
  Country: None (occurrence: None)
  Receive Date: 20070405
  Receipt Date: 20070327
  Transmission Date: 20071010
  Serious: Yes (Death)
  Sender: FDA-Public Use
  Company Number: CA-ABBOTT-07P-028-0363526-00

PATIENT
  Sex: Male
  Weight: 75 kg

DRUGS (1)
  1. MAVIK [Suspect]
     Indication: HYPERTENSION
     Route: 048
     Dates: start: 20060925, end: 20070207

REACTIONS (2)
  - CERVICAL VERTEBRAL FRACTURE [None]
  - HEAD INJURY [None]
